FAERS Safety Report 4895467-9 (Version None)
Quarter: 2006Q1

REPORT INFORMATION
  Report Type: 
  Country: None (occurrence: None)
  Receive Date: 20060130
  Receipt Date: 20060116
  Transmission Date: 20060701
  Serious: Yes (Other)
  Sender: FDA-Public Use
  Company Number: JP-BOEHRINGER INGELHEIM PHARMACEUTICALS, INC.-2006-BP-00997YA

PATIENT
  Age: 75 Year
  Sex: Male

DRUGS (9)
  1. HARNAL D (TAMSULOSIN HYDROCHLORIDE) [Suspect]
     Indication: BENIGN PROSTATIC HYPERPLASIA
     Route: 048
     Dates: start: 20050101
  2. HARNAL D (TAMSULOSIN HYDROCHLORIDE) [Suspect]
     Indication: DYSURIA
  3. METLIGINE [Suspect]
  4. LANDSEN [Suspect]
  5. LIMAS [Suspect]
  6. TETRAMIDE [Suspect]
  7. TOLEDOMIN [Suspect]
  8. SIGMART [Suspect]
  9. ETILEFRINE HYDROCHLORIDE [Concomitant]
     Indication: ORTHOSTATIC HYPOTENSION

REACTIONS (4)
  - DELIRIUM [None]
  - INCONTINENCE [None]
  - LABILE BLOOD PRESSURE [None]
  - SUBDURAL HYGROMA [None]
